FAERS Safety Report 10079447 (Version 1)
Quarter: 2014Q2

REPORT INFORMATION
  Report Type: Report from Study
  Country: US (occurrence: US)
  Receive Date: 20140415
  Receipt Date: 20140415
  Transmission Date: 20141212
  Serious: Yes (Other)
  Sender: FDA-Public Use
  Company Number: US-BRISTOL-MYERS SQUIBB COMPANY-20596979

PATIENT
  Sex: Female
  Weight: 122 kg

DRUGS (1)
  1. ORENCIA [Suspect]

REACTIONS (5)
  - Dementia [Unknown]
  - Back pain [Unknown]
  - Nausea [Unknown]
  - Abdominal pain upper [Unknown]
  - Diarrhoea [Unknown]
